FAERS Safety Report 13090736 (Version 10)
Quarter: 2017Q4

REPORT INFORMATION
  Report Type: Report from Study
  Country: IT (occurrence: IT)
  Receive Date: 20170106
  Receipt Date: 20171102
  Transmission Date: 20180320
  Serious: Yes (Death, Hospitalization, Other)
  Sender: FDA-Public Use
  Company Number: IT-BIOGEN-2017BI00337827

PATIENT
  Age: 35 Year
  Sex: Male
  Weight: 73 kg

DRUGS (6)
  1. CEFIXORAL [Concomitant]
     Active Substance: CEFIXIME
     Indication: TOOTH ABSCESS
     Route: 065
     Dates: start: 20160112, end: 20160117
  2. LEVETIRACETAM. [Concomitant]
     Active Substance: LEVETIRACETAM
     Indication: EPILEPSY
     Route: 065
     Dates: start: 20150225, end: 20150319
  3. LEVETIRACETAM. [Concomitant]
     Active Substance: LEVETIRACETAM
     Route: 065
     Dates: start: 20150930, end: 20151120
  4. DACLIZUMAB HYP [Suspect]
     Active Substance: DACLIZUMAB
     Indication: MULTIPLE SCLEROSIS
     Route: 058
     Dates: start: 20140210, end: 20161017
  5. CEFIXORAL [Concomitant]
     Active Substance: CEFIXIME
     Dates: start: 20150212, end: 20150217
  6. LEVETIRACETAM. [Concomitant]
     Active Substance: LEVETIRACETAM
     Route: 065
     Dates: start: 20150325, end: 20150929

REACTIONS (6)
  - Cardiac arrest [Fatal]
  - Multiple organ dysfunction syndrome [Not Recovered/Not Resolved]
  - Septic shock [Fatal]
  - Status epilepticus [Not Recovered/Not Resolved]
  - Acute respiratory distress syndrome [Not Recovered/Not Resolved]
  - Pneumonia aspiration [Not Recovered/Not Resolved]

NARRATIVE: CASE EVENT DATE: 20161120
